FAERS Safety Report 8000176-3 (Version None)
Quarter: 2011Q4

REPORT INFORMATION
  Report Type: 
  Country: None (occurrence: None)
  Receive Date: 20111123
  Receipt Date: 20111101
  Transmission Date: 20120403
  Serious: Yes (Hospitalization)
  Sender: FDA-Public Use
  Company Number: 335710

PATIENT
  Age: 59 Year
  Sex: Male

DRUGS (9)
  1. ASPIRIN [Concomitant]
  2. SIMVASTATIN [Concomitant]
  3. SYNTHROID [Concomitant]
  4. LANTUS [Concomitant]
  5. VICTOZA [Suspect]
     Indication: TYPE 2 DIABETES MELLITUS
     Dosage: 0.6 MG, QD, SUBCUTANEOUS ; 1.2 MG, QD, SUBCUTANEOUS
     Route: 058
     Dates: start: 20110701, end: 20110701
  6. VICTOZA [Suspect]
     Indication: TYPE 2 DIABETES MELLITUS
     Dosage: 0.6 MG, QD, SUBCUTANEOUS ; 1.2 MG, QD, SUBCUTANEOUS
     Route: 058
     Dates: start: 20110701, end: 20110701
  7. LISINOPRIL [Concomitant]
  8. METFORMIN HCL [Concomitant]
  9. MULTIVITAMIN /000097801/ (ASCORBIC ACID, CALCIUM PANTOTHENATE, ERGOCAL [Concomitant]

REACTIONS (3)
  - PANCREATITIS ACUTE [None]
  - DIVERTICULUM [None]
  - CHOLELITHIASIS [None]
